FAERS Safety Report 18881180 (Version 2)
Quarter: 2021Q3

REPORT INFORMATION
  Report Type: Report from Study
  Country: None (occurrence: US)
  Receive Date: 20210211
  Receipt Date: 20210908
  Transmission Date: 20211014
  Serious: Yes (Hospitalization, Other)
  Sender: FDA-Public Use
  Company Number: US-ABBVIE-21P-163-3764776-00

PATIENT
  Age: 71 Year
  Sex: Male
  Weight: 89.6 kg

DRUGS (10)
  1. ZOFRAN [Concomitant]
     Active Substance: ONDANSETRON HYDROCHLORIDE
     Indication: NAUSEA
     Route: 048
     Dates: start: 20200507
  2. VENETOCLAX. [Suspect]
     Active Substance: VENETOCLAX
     Route: 048
     Dates: start: 20210205
  3. DEXAMETHASONE. [Suspect]
     Active Substance: DEXAMETHASONE
     Indication: PLASMA CELL MYELOMA
     Dosage: DAY 1, 8, 15, 22 OF EACH 28 DAY CYCLE
     Route: 048
     Dates: start: 20201218
  4. CALCIUM CARBONATE?VITAMIN D3 (CALTRATE600+D) [Concomitant]
     Indication: VITAMIN D DEFICIENCY
     Route: 048
     Dates: start: 20200527
  5. CHOLECALCIFEROL, VITAMIN D3 [Concomitant]
     Indication: VITAMIN D DEFICIENCY
     Route: 048
     Dates: start: 20201128
  6. POLYVINYL ALCOHOL?POVIDONE PF (REFRESH) [Concomitant]
     Indication: DRY EYE
     Dosage: 1.4% ?0.6% OPHTHALMIC SOLUTION
     Route: 031
     Dates: start: 20200325
  7. TRAMADOL (ULTRAM) [Concomitant]
     Indication: POLYNEUROPATHY
     Route: 048
     Dates: start: 20201218
  8. PROTONIX [Concomitant]
     Active Substance: PANTOPRAZOLE SODIUM
     Indication: GASTROOESOPHAGEAL REFLUX DISEASE
     Route: 048
     Dates: start: 20180129
  9. MULTIVITAMIN CHEW [Concomitant]
     Indication: VITAMIN SUPPLEMENTATION
     Route: 048
     Dates: start: 20190221
  10. VENETOCLAX. [Suspect]
     Active Substance: VENETOCLAX
     Indication: PLASMA CELL MYELOMA
     Dosage: 28?DAY CYCLE
     Route: 048
     Dates: start: 20201218, end: 20210203

REACTIONS (1)
  - Diverticulitis [Not Recovered/Not Resolved]

NARRATIVE: CASE EVENT DATE: 20210204
